FAERS Safety Report 8366268-4 (Version None)
Quarter: 2012Q2

REPORT INFORMATION
  Report Type: 
  Country: None (occurrence: None)
  Receive Date: 20120517
  Receipt Date: 20120504
  Transmission Date: 20120825
  Serious: Yes (Other)
  Sender: FDA-Public Use
  Company Number: PHHY2009AU070471

PATIENT
  Sex: Female

DRUGS (7)
  1. OMEPRAZOLE (PRISOLEC) [Concomitant]
     Indication: GASTROOESOPHAGEAL REFLUX DISEASE
     Dosage: 20 MG, DAILY
     Route: 048
     Dates: start: 20100101
  2. CRESTOR [Concomitant]
     Indication: LIPIDS INCREASED
     Dosage: 10 MG, DAILY
     Route: 048
     Dates: start: 20110101
  3. PULMICORT [Concomitant]
     Indication: ASTHMA
     Dosage: 800 MG, BID
     Dates: start: 20000101
  4. ZOLEDRONOC ACID [Suspect]
     Dosage: 5 MG, UNK
     Route: 042
     Dates: start: 20081219
  5. INDERAL [Concomitant]
     Indication: TACHYCARDIA
     Dosage: 20 MG, BID
     Route: 048
     Dates: start: 20101001
  6. NORDETTE-28 [Concomitant]
     Dosage: 20 OT, DAILY
     Route: 048
     Dates: start: 20040101
  7. MICARDIS [Concomitant]
     Indication: HYPERTENSION
     Dosage: 80 MG, DAILY
     Route: 048
     Dates: start: 20080101

REACTIONS (1)
  - HAND FRACTURE [None]
